FAERS Safety Report 25857547 (Version 2)
Quarter: 2025Q4

REPORT INFORMATION
  Report Type: Spontaneous
  Country: JP (occurrence: JP)
  Receive Date: 20250929
  Receipt Date: 20251018
  Transmission Date: 20260117
  Serious: Yes (Hospitalization)
  Sender: JOHNSON AND JOHNSON
  Company Number: JP-JNJFOC-20250944882

PATIENT
  Age: 84 Year
  Sex: Male

DRUGS (1)
  1. ZYTIGA [Suspect]
     Active Substance: ABIRATERONE ACETATE
     Indication: Product used for unknown indication
     Route: 048

REACTIONS (1)
  - Large intestine polyp [Unknown]
